FAERS Safety Report 13658945 (Version 1)
Quarter: 2017Q2

REPORT INFORMATION
  Report Type: Spontaneous
  Country: US (occurrence: US)
  Receive Date: 20170615
  Receipt Date: 20170615
  Transmission Date: 20170830
  Serious: No
  Sender: FDA-Public Use
  Company Number: None

PATIENT
  Age: 52 Year
  Sex: Female

DRUGS (1)
  1. ENBREL [Suspect]
     Active Substance: ETANERCEPT
     Route: 058
     Dates: start: 20170310

REACTIONS (9)
  - Injection site erythema [None]
  - Dyspnoea [None]
  - Anxiety [None]
  - Injection site swelling [None]
  - Injection site pruritus [None]
  - Paraesthesia [None]
  - Stress [None]
  - Hypoaesthesia [None]
  - Injection site urticaria [None]

NARRATIVE: CASE EVENT DATE: 20170615
